FAERS Safety Report 11605677 (Version 1)
Quarter: 2015Q4

REPORT INFORMATION
  Report Type: Spontaneous
  Country: BR (occurrence: BR)
  Receive Date: 20151007
  Receipt Date: 20151007
  Transmission Date: 20160304
  Serious: Yes (Other)
  Sender: FDA-Public Use
  Company Number: BR-009507513-1510BRA002470

PATIENT
  Sex: Female

DRUGS (1)
  1. DESALEX [Suspect]
     Active Substance: DESLORATADINE
     Dosage: 5 MG, Q12H
     Route: 048
     Dates: start: 20150919, end: 20150925

REACTIONS (13)
  - Insomnia [Not Recovered/Not Resolved]
  - Cough [Not Recovered/Not Resolved]
  - Throat irritation [Not Recovered/Not Resolved]
  - Conjunctivitis [Not Recovered/Not Resolved]
  - Vomiting [Recovering/Resolving]
  - Chills [Not Recovered/Not Resolved]
  - Dizziness [Not Recovered/Not Resolved]
  - Asthenia [Not Recovered/Not Resolved]
  - Aphonia [Not Recovered/Not Resolved]
  - Hypotension [Not Recovered/Not Resolved]
  - Retching [Recovering/Resolving]
  - Ageusia [Not Recovered/Not Resolved]
  - Adverse event [Not Recovered/Not Resolved]

NARRATIVE: CASE EVENT DATE: 20150919
